FAERS Safety Report 23893139 (Version 1)
Quarter: 2024Q2

REPORT INFORMATION
  Report Type: Spontaneous
  Country: US (occurrence: None)
  Receive Date: 20240524
  Receipt Date: 20240524
  Transmission Date: 20240716
  Serious: No
  Sender: FDA-Public Use
  Company Number: US-ROCHE-3331846

PATIENT
  Sex: Female

DRUGS (11)
  1. ACTEMRA [Suspect]
     Active Substance: TOCILIZUMAB
     Indication: Rheumatoid arthritis
     Dosage: STRENGTH: 162MG/0.9ML
     Route: 058
  2. ACTEMRA [Suspect]
     Active Substance: TOCILIZUMAB
  3. ACTEMRA [Suspect]
     Active Substance: TOCILIZUMAB
  4. VENTOLIN HFA [Concomitant]
     Active Substance: ALBUTEROL SULFATE
  5. TASIGNA [Concomitant]
     Active Substance: NILOTINIB
  6. NORVASC [Concomitant]
     Active Substance: AMLODIPINE BESYLATE
  7. ZOCOR [Concomitant]
     Active Substance: SIMVASTATIN
  8. MEDROL [Concomitant]
     Active Substance: METHYLPREDNISOLONE
  9. ZESTORETIC [Concomitant]
     Active Substance: HYDROCHLOROTHIAZIDE\LISINOPRIL
  10. METHOTREXATE [Concomitant]
     Active Substance: METHOTREXATE
  11. PLAQUENIL [Concomitant]
     Active Substance: HYDROXYCHLOROQUINE SULFATE

REACTIONS (1)
  - White blood cell count decreased [Not Recovered/Not Resolved]
